FAERS Safety Report 22021725 (Version 1)
Quarter: 2023Q1

REPORT INFORMATION
  Report Type: Spontaneous
  Country: US (occurrence: None)
  Receive Date: 20230219
  Receipt Date: 20230219
  Transmission Date: 20230417
  Serious: Yes (Hospitalization, Other)
  Sender: FDA-Public Use
  Company Number: None

PATIENT
  Age: 77 Year
  Sex: Female
  Weight: 54 kg

DRUGS (5)
  1. ERTAPENEM [Suspect]
     Active Substance: ERTAPENEM
     Indication: Beta haemolytic streptococcal infection
     Dosage: FREQUENCY : DAILY;?
     Route: 042
     Dates: start: 20230207, end: 20230213
  2. SINGULAIR [Concomitant]
     Active Substance: MONTELUKAST SODIUM
  3. PROBENECID [Concomitant]
     Active Substance: PROBENECID
  4. DUPIXENT [Concomitant]
     Active Substance: DUPILUMAB
  5. LOVENOX [Concomitant]
     Active Substance: ENOXAPARIN SODIUM

REACTIONS (4)
  - Seizure [None]
  - Urinary incontinence [None]
  - Cognitive disorder [None]
  - Confusional state [None]

NARRATIVE: CASE EVENT DATE: 20230212
